FAERS Safety Report 7305316-7 (Version None)
Quarter: 2011Q1

REPORT INFORMATION
  Report Type: 
  Country: None (occurrence: None)
  Receive Date: 20110210
  Receipt Date: 20110128
  Transmission Date: 20110831
  Serious: Yes (Hospitalization)
  Sender: FDA-Public Use
  Company Number: 012154

PATIENT
  Sex: Female

DRUGS (2)
  1. KEPPRA [Concomitant]
  2. LACOSAMIDE [Suspect]
     Dosage: 50 MG BID ORAL
     Route: 048
     Dates: start: 20100504

REACTIONS (1)
  - STATUS EPILEPTICUS [None]
